APPROVED DRUG PRODUCT: FLUPHENAZINE HYDROCHLORIDE
Active Ingredient: FLUPHENAZINE HYDROCHLORIDE
Strength: 10MG
Dosage Form/Route: TABLET;ORAL
Application: A214534 | Product #004 | TE Code: AB
Applicant: DR REDDYS LABORATORIES INC
Approved: Jan 7, 2021 | RLD: No | RS: No | Type: RX